FAERS Safety Report 4824196-2 (Version None)
Quarter: 2005Q4

REPORT INFORMATION
  Report Type: 
  Country: None (occurrence: None)
  Receive Date: 20051108
  Receipt Date: 20051027
  Transmission Date: 20060501
  Serious: Yes (Other)
  Sender: FDA-Public Use
  Company Number: USA0509107871

PATIENT
  Age: 71 Year
  Sex: Female

DRUGS (10)
  1. FORTEO [Suspect]
     Indication: OSTEOPOROSIS
     Dates: start: 20040101
  2. AVANDIA [Concomitant]
  3. FUROSEMIDE [Concomitant]
  4. CLONIDINE [Concomitant]
  5. ADALAT [Concomitant]
  6. ALLOPURINOL [Concomitant]
  7. PLAVIX [Concomitant]
  8. POTASSIUM CHLORIDE [Concomitant]
  9. ZOCOR [Concomitant]
  10. DIOVAN /SCH/(VALSARTAN) [Concomitant]

REACTIONS (6)
  - AORTIC ANEURYSM [None]
  - BLOOD PRESSURE INCREASED [None]
  - DIALYSIS [None]
  - PHARMACEUTICAL PRODUCT COMPLAINT [None]
  - RENAL ATROPHY [None]
  - RENAL FAILURE [None]
